FAERS Safety Report 5733177-6 (Version None)
Quarter: 2008Q2

REPORT INFORMATION
  Report Type: 
  Country: None (occurrence: None)
  Receive Date: 20080507
  Receipt Date: 20080430
  Transmission Date: 20081010
  Serious: Yes (Hospitalization)
  Sender: FDA-Public Use
  Company Number: 2008SP007981

PATIENT
  Age: 70 Year
  Sex: Male

DRUGS (4)
  1. IMDUR [Suspect]
     Indication: ANGINA PECTORIS
     Dosage: PO
     Route: 048
  2. ASPIRIN [Concomitant]
  3. PLAVIX [Concomitant]
  4. LIPITOR [Concomitant]

REACTIONS (1)
  - CEREBRAL HAEMORRHAGE [None]
